FAERS Safety Report 9721039 (Version 2)
Quarter: 2013Q4

REPORT INFORMATION
  Report Type: Spontaneous
  Country: US (occurrence: US)
  Receive Date: 20131129
  Receipt Date: 20131129
  Transmission Date: 20140711
  Serious: Yes (Other)
  Sender: FDA-Public Use
  Company Number: CHPA2013US017475

PATIENT
  Age: 74 Year
  Sex: Female

DRUGS (4)
  1. ACETYLSALICYLIC ACID [Suspect]
     Indication: ARTHRITIS
     Route: 065
  2. TYLENOL [Concomitant]
     Indication: ARTHRITIS
     Route: 065
  3. OXYCONTIN [Concomitant]
     Indication: SPINAL COLUMN STENOSIS
     Route: 065
  4. VOLTAREN ^NOVARTIS^ [Concomitant]
     Indication: SPINAL COLUMN STENOSIS
     Route: 061

REACTIONS (2)
  - Gastric ulcer haemorrhage [Recovered/Resolved]
  - Spinal column stenosis [Not Recovered/Not Resolved]
